FAERS Safety Report 5378004-4 (Version None)
Quarter: 2007Q2

REPORT INFORMATION
  Report Type: 
  Country: None (occurrence: None)
  Receive Date: 20070629
  Receipt Date: 20070615
  Transmission Date: 20071010
  Serious: Yes (Hospitalization)
  Sender: FDA-Public Use
  Company Number: 2007S1005440

PATIENT
  Age: 63 Year
  Sex: Female
  Weight: 50.8029 kg

DRUGS (4)
  1. INDAPAMIDE [Suspect]
     Indication: HYPERTENSION
     Dosage: 2.5 MG; DAILY; ORAL
     Route: 048
     Dates: start: 20030101
  2. ATENOLOL [Suspect]
     Indication: HYPERTENSION
     Dosage: 25 MG; ORAL
     Route: 048
     Dates: start: 20070101
  3. CLONAZEPAM [Concomitant]
  4. PREMARIN [Concomitant]

REACTIONS (8)
  - ANXIETY [None]
  - DEPRESSION [None]
  - DRUG INEFFECTIVE [None]
  - HYPERTENSION [None]
  - LUNG INFECTION [None]
  - MALAISE [None]
  - OEDEMA [None]
  - UNEVALUABLE EVENT [None]
